FAERS Safety Report 5702844-2 (Version None)
Quarter: 2008Q2

REPORT INFORMATION
  Report Type: 
  Country: None (occurrence: None)
  Receive Date: 20080411
  Receipt Date: 20080331
  Transmission Date: 20081010
  Serious: Yes (Hospitalization)
  Sender: FDA-Public Use
  Company Number: JP-ASTRAZENECA-2008SE01357

PATIENT
  Sex: Female
  Weight: 3 kg

DRUGS (3)
  1. BLOPRESS [Suspect]
     Route: 048
  2. INCREMIN SYRUP [Concomitant]
     Indication: ANAEMIA NEONATAL
     Route: 048
     Dates: start: 20071226
  3. ALFAROL [Concomitant]
     Indication: RICKETS
     Route: 048
     Dates: start: 20080125

REACTIONS (1)
  - HYPONATRAEMIA [None]
